FAERS Safety Report 16287029 (Version 1)
Quarter: 2019Q2

REPORT INFORMATION
  Report Type: Spontaneous
  Country: US (occurrence: US)
  Receive Date: 20190508
  Receipt Date: 20190508
  Transmission Date: 20190711
  Serious: No
  Sender: FDA-Public Use
  Company Number: US-ASTRAZENECA-2019SE56087

PATIENT
  Sex: Female
  Weight: 126.1 kg

DRUGS (3)
  1. WELLBUTRIN [Concomitant]
     Active Substance: BUPROPION HYDROCHLORIDE
  2. BYDUREON BCISE [Suspect]
     Active Substance: EXENATIDE
     Route: 058
  3. LEVEMIR [Concomitant]
     Active Substance: INSULIN DETEMIR

REACTIONS (7)
  - Headache [Unknown]
  - Intervertebral disc protrusion [Unknown]
  - Fall [Unknown]
  - Weight decreased [Unknown]
  - Pain [Unknown]
  - Blood glucose increased [Unknown]
  - Device issue [Unknown]
